FAERS Safety Report 20208235 (Version 4)
Quarter: 2022Q1

REPORT INFORMATION
  Report Type: Spontaneous
  Country: US (occurrence: US)
  Receive Date: 20211220
  Receipt Date: 20220331
  Transmission Date: 20220423
  Serious: Yes (Hospitalization, Other)
  Sender: FDA-Public Use
  Company Number: US-BoehringerIngelheim-2021-BI-144577

PATIENT
  Age: 79 Year
  Sex: Male

DRUGS (2)
  1. SPIRIVA RESPIMAT [Suspect]
     Active Substance: TIOTROPIUM BROMIDE
     Indication: Chronic obstructive pulmonary disease
     Route: 055
     Dates: start: 20211217
  2. SPIRIVA RESPIMAT [Suspect]
     Active Substance: TIOTROPIUM BROMIDE
     Indication: Dyspnoea

REACTIONS (4)
  - Dyspnoea [Recovering/Resolving]
  - Coronary artery occlusion [Unknown]
  - Off label use [Unknown]
  - Device issue [Unknown]

NARRATIVE: CASE EVENT DATE: 20211101
